FAERS Safety Report 12977021 (Version 1)
Quarter: 2016Q4

REPORT INFORMATION
  Report Type: Report from Study
  Country: BR (occurrence: BR)
  Receive Date: 20161128
  Receipt Date: 20161128
  Transmission Date: 20170207
  Serious: Yes (Congenital Anomaly)
  Sender: FDA-Public Use
  Company Number: BR-HETERO LABS LTD-1060080

PATIENT
  Sex: Female
  Weight: 3 kg

DRUGS (4)
  1. TENOFOVIR\ LAMIVUDINE [Suspect]
     Active Substance: LAMIVUDINE\TENOFOVIR
     Indication: HIV INFECTION
     Route: 064
     Dates: start: 20160621
  2. ATAZANAVIR SULFATE [Suspect]
     Active Substance: ATAZANAVIR SULFATE
     Route: 064
  3. ZIDOVUDINE. [Suspect]
     Active Substance: ZIDOVUDINE
     Route: 064
     Dates: start: 20161111
  4. RITONAVIR. [Suspect]
     Active Substance: RITONAVIR
     Route: 064
     Dates: start: 20160621

REACTIONS (1)
  - Congenital naevus [Unknown]
